FAERS Safety Report 8862875 (Version 1)
Quarter: 2012Q4

REPORT INFORMATION
  Report Type: Report from Study
  Country: BR (occurrence: BR)
  Receive Date: 20121026
  Receipt Date: 20121026
  Transmission Date: 20130627
  Serious: Yes (Hospitalization, Other)
  Sender: FDA-Public Use
  Company Number: BR-ABBOTT-12P-020-0998137-00

PATIENT
  Sex: Male
  Weight: 100 kg

DRUGS (4)
  1. HUMIRA [Suspect]
     Indication: PSORIATIC ARTHROPATHY
     Dates: start: 20110501
  2. HUMIRA [Suspect]
  3. UNKNOWN DRUG [Concomitant]
     Indication: PRODUCT USED FOR UNKNOWN INDICATION
  4. UNKNOWN DRUG [Concomitant]
     Indication: NEOPLASM

REACTIONS (6)
  - Malaise [Unknown]
  - Neoplasm [Recovering/Resolving]
  - Infection [Unknown]
  - Nosocomial infection [Unknown]
  - Psoriatic arthropathy [Unknown]
  - Localised infection [Unknown]
